FAERS Safety Report 19021608 (Version 1)
Quarter: 2021Q1

REPORT INFORMATION
  Report Type: Spontaneous
  Country: DE (occurrence: DE)
  Receive Date: 20210317
  Receipt Date: 20210317
  Transmission Date: 20210420
  Serious: Yes (Death, Life-Threatening, Hospitalization, Other)
  Sender: FDA-Public Use
  Company Number: DE-TEVA-2021-DE-1890259

PATIENT
  Age: 87 Year
  Sex: Male

DRUGS (10)
  1. TORASEMID [Concomitant]
     Active Substance: TORSEMIDE
     Dosage: 20 MILLIGRAM DAILY; 10 MG, 2?0?0?0
  2. FERRO SANOL [Concomitant]
     Active Substance: FERROUS GLYCINE SULFATE
     Dosage: 1 DOSAGE FORMS DAILY; 1?0?0?0
  3. CANDESARTAN. [Concomitant]
     Active Substance: CANDESARTAN
     Dosage: 8 MILLIGRAM DAILY; 16 MG, 0?0?0.5?0
  4. KALIUM [Concomitant]
     Active Substance: POTASSIUM CHLORIDE
     Dosage: NEED, EFFERVESCENT TABLETS:UNIT DOSE:1DOSAGEFORM
  5. PANTOPRAZOL [Concomitant]
     Active Substance: PANTOPRAZOLE SODIUM
     Dosage: 40 MILLIGRAM DAILY; 1?0?0?0
  6. AMIODARON [Suspect]
     Active Substance: AMIODARONE
     Dosage: 200 MILLIGRAM DAILY; 1?0?0?0
  7. XARELTO [Suspect]
     Active Substance: RIVAROXABAN
     Dosage: 15 MILLIGRAM DAILY; 1?0?0?0
  8. FLORADIX MIT EISEN [Concomitant]
     Dosage: 90 MILLIGRAM DAILY; 1?1?1?0
  9. METOPROLOL. [Suspect]
     Active Substance: METOPROLOL
     Dosage: .25 DOSAGE FORMS DAILY; 23.75 MG, 0?0?0.25?0
  10. ATORVASTATIN [Concomitant]
     Active Substance: ATORVASTATIN
     Dosage: 40 MILLIGRAM DAILY; 0?0?1?0

REACTIONS (4)
  - General physical health deterioration [Unknown]
  - Vomiting [Unknown]
  - Anaemia [Unknown]
  - Bradycardia [Unknown]
